FAERS Safety Report 7249848-9 (Version None)
Quarter: 2011Q1

REPORT INFORMATION
  Report Type: 
  Country: None (occurrence: None)
  Receive Date: 20110128
  Receipt Date: 20100709
  Transmission Date: 20110831
  Serious: No
  Sender: FDA-Public Use
  Company Number: A0865337A

PATIENT
  Age: 62 Year
  Sex: Female

DRUGS (2)
  1. WELLBUTRIN XL [Suspect]
     Indication: DEPRESSION
     Dosage: 300MG PER DAY
     Route: 048
  2. BUPROPION HYDROCHLORIDE [Suspect]
     Indication: DEPRESSION
     Route: 048

REACTIONS (7)
  - DEPRESSED MOOD [None]
  - IRRITABILITY [None]
  - MALAISE [None]
  - DRUG INEFFECTIVE [None]
  - APATHY [None]
  - TEARFULNESS [None]
  - POOR QUALITY SLEEP [None]
